FAERS Safety Report 16678019 (Version 1)
Quarter: 2019Q3

REPORT INFORMATION
  Report Type: Spontaneous
  Country: AU (occurrence: AU)
  Receive Date: 20190807
  Receipt Date: 20190807
  Transmission Date: 20191004
  Serious: Yes (Hospitalization, Other)
  Sender: FDA-Public Use
  Company Number: AU-BRISTOL-MYERS SQUIBB COMPANY-BMS-2019-042388

PATIENT
  Sex: Female

DRUGS (2)
  1. NIVOLUMAB [Suspect]
     Active Substance: NIVOLUMAB
     Indication: MALIGNANT MELANOMA
     Dosage: UNAVAILABLE
     Route: 042
     Dates: start: 20181127, end: 20181127
  2. IPILIMUMAB [Suspect]
     Active Substance: IPILIMUMAB
     Indication: MALIGNANT MELANOMA
     Dosage: UNK
     Route: 042
     Dates: start: 20181127, end: 20181127

REACTIONS (10)
  - Liver function test increased [Unknown]
  - Nephritis [Unknown]
  - Rash [Unknown]
  - Rectal haemorrhage [Unknown]
  - Duodenitis [Unknown]
  - Systemic inflammatory response syndrome [Unknown]
  - Toxicity to various agents [Unknown]
  - Pancreatic enzymes increased [Unknown]
  - Headache [Unknown]
  - Gastritis [Unknown]
